FAERS Safety Report 13561115 (Version 2)
Quarter: 2017Q2

REPORT INFORMATION
  Report Type: Spontaneous
  Country: US (occurrence: US)
  Receive Date: 20170518
  Receipt Date: 20170608
  Transmission Date: 20170830
  Serious: No
  Sender: FDA-Public Use
  Company Number: US-BEH-2017080545

PATIENT
  Age: 31 Year
  Sex: Female

DRUGS (3)
  1. HIZENTRA [Suspect]
     Active Substance: HUMAN IMMUNOGLOBULIN G
     Dosage: UNK
     Route: 065
     Dates: start: 20170526, end: 20170526
  2. HIZENTRA [Suspect]
     Active Substance: HUMAN IMMUNOGLOBULIN G
     Indication: IMMUNODEFICIENCY COMMON VARIABLE
     Dosage: 8 G (40ML), QW
     Route: 058
     Dates: start: 20150118
  3. HIZENTRA [Suspect]
     Active Substance: HUMAN IMMUNOGLOBULIN G
     Dosage: UNK
     Route: 065
     Dates: start: 20170515, end: 20170515

REACTIONS (4)
  - Infusion site pain [Recovering/Resolving]
  - Infusion site nodule [Recovering/Resolving]
  - Infusion site pain [Recovering/Resolving]
  - Infusion site nodule [Recovering/Resolving]

NARRATIVE: CASE EVENT DATE: 20170515
